FAERS Safety Report 8588149-3 (Version None)
Quarter: 2012Q3

REPORT INFORMATION
  Report Type: 
  Country: None (occurrence: None)
  Receive Date: 20120731
  Receipt Date: 20120716
  Transmission Date: 20120928
  Serious: Yes (Hospitalization)
  Sender: FDA-Public Use
  Company Number: AUR-APL-2012-03187

PATIENT
  Age: 65 Year
  Sex: Male

DRUGS (4)
  1. LEVOFLOXACIN [Suspect]
     Indication: OESOPHAGEAL PERFORATION
  2. VANCOMYCIN HCL [Suspect]
     Indication: OESOPHAGEAL PERFORATION
  3. METRONIDAZOLE [Concomitant]
  4. FLUCONAZOLE [Concomitant]

REACTIONS (10)
  - ARRHYTHMIA SUPRAVENTRICULAR [None]
  - TRACHEAL OEDEMA [None]
  - RESPIRATORY DISTRESS [None]
  - METABOLIC ACIDOSIS [None]
  - PHARYNGEAL OEDEMA [None]
  - VOCAL CORD DISORDER [None]
  - DRUG RASH WITH EOSINOPHILIA AND SYSTEMIC SYMPTOMS [None]
  - OEDEMA MUCOSAL [None]
  - GENERAL PHYSICAL HEALTH DETERIORATION [None]
  - TONGUE OEDEMA [None]
